FAERS Safety Report 21188157 (Version 1)
Quarter: 2022Q3

REPORT INFORMATION
  Report Type: Spontaneous
  Country: US (occurrence: US)
  Receive Date: 20220809
  Receipt Date: 20220809
  Transmission Date: 20221027
  Serious: Yes (Other)
  Sender: FDA-Public Use
  Company Number: US-drreddys-LIT/USA/22/0153065

PATIENT
  Age: 8 Month
  Sex: Male

DRUGS (2)
  1. SIROLIMUS [Suspect]
     Active Substance: SIROLIMUS
     Indication: Hamartoma
     Route: 048
  2. SIROLIMUS [Suspect]
     Active Substance: SIROLIMUS
     Indication: Retinal disorder
     Route: 048

REACTIONS (4)
  - Upper respiratory tract infection [Unknown]
  - Ear infection [Unknown]
  - Hypercholesterolaemia [Unknown]
  - Off label use [Unknown]
